FAERS Safety Report 9788426 (Version 4)
Quarter: 2014Q1

REPORT INFORMATION
  Report Type: Report from Study
  Country: DE (occurrence: DE)
  Receive Date: 20131230
  Receipt Date: 20140212
  Transmission Date: 20141002
  Serious: Yes (Hospitalization)
  Sender: FDA-Public Use
  Company Number: DE-ROCHE-1322582

PATIENT
  Age: 75 Year
  Sex: Male
  Weight: 80 kg

DRUGS (16)
  1. VISMODEGIB [Suspect]
     Indication: ACUTE MYELOID LEUKAEMIA
     Dosage: THE MOST RECENT DOSE PRIOR TO THE ONSET OF THE AE WAS TAKEN ON 17/DEC/2013, LAST DOSE ADMINISTERED:
     Route: 048
     Dates: start: 20131203
  2. VISMODEGIB [Suspect]
     Indication: MYELODYSPLASTIC SYNDROME
  3. CIPROBAY [Concomitant]
     Indication: INFECTION
     Route: 065
     Dates: start: 20130222, end: 20131218
  4. L-THYROXIN [Concomitant]
     Indication: HYPOTHYROIDISM
  5. VFEND [Concomitant]
     Indication: INFECTION PROPHYLAXIS
     Route: 065
     Dates: start: 2013
  6. ACICLOVIR [Concomitant]
     Indication: INFECTION PROPHYLAXIS
     Route: 065
     Dates: start: 20130121
  7. ACICLOVIR [Concomitant]
     Route: 065
     Dates: start: 20131219
  8. BEROTEC [Concomitant]
     Indication: COUGH
     Route: 065
     Dates: start: 2013
  9. PENTACARINAT [Concomitant]
     Route: 065
     Dates: start: 2013
  10. CODEIN [Concomitant]
     Indication: COUGH
     Route: 065
     Dates: end: 2013
  11. COTRIM FORTE [Concomitant]
     Indication: INFECTION PROPHYLAXIS
     Route: 065
     Dates: start: 20131218
  12. NACL .9% [Concomitant]
     Route: 065
     Dates: start: 20131220, end: 20131220
  13. XIMOVAN [Concomitant]
     Indication: SLEEP DISORDER
     Route: 065
     Dates: start: 20131210, end: 20131227
  14. ZYVOXID [Concomitant]
     Route: 065
     Dates: start: 20131219, end: 20131230
  15. UNACID [Concomitant]
     Indication: INFECTION PROPHYLAXIS
     Route: 065
     Dates: start: 20131230, end: 20140107
  16. EPINEPHRINE [Concomitant]
     Route: 065
     Dates: start: 20131227, end: 20131230

REACTIONS (1)
  - Pyrexia [Recovered/Resolved]
